FAERS Safety Report 8443334-6 (Version None)
Quarter: 2012Q2

REPORT INFORMATION
  Report Type: 
  Country: None (occurrence: None)
  Receive Date: 20120618
  Receipt Date: 20120613
  Transmission Date: 20120825
  Serious: Yes (Hospitalization)
  Sender: FDA-Public Use
  Company Number: PHHO2012JP005426

PATIENT
  Sex: Female
  Weight: 51 kg

DRUGS (13)
  1. INC424 [Suspect]
     Dosage: 20 MG, QD
     Dates: start: 20120525
  2. LANSOPRAZOLE [Concomitant]
     Indication: PROPHYLAXIS AGAINST GASTROINTESTINAL ULCER
     Dosage: 30 MG, UNK
     Dates: start: 20081014
  3. MS CONTIN [Concomitant]
     Indication: CANCER PAIN
     Dosage: 20 MG, UNK
     Route: 048
     Dates: start: 20091214
  4. PREDNISOLONE [Suspect]
     Indication: PLATELET COUNT DECREASED
     Dosage: 10 MG, QD
     Route: 048
     Dates: start: 20040518
  5. INC424 [Suspect]
     Indication: MYELOFIBROSIS
     Dosage: 30 MG, BID
     Route: 048
     Dates: start: 20111212, end: 20120331
  6. EXJADE [Concomitant]
     Indication: HAEMOCHROMATOSIS
     Dosage: 125 MG, UNK
     Route: 048
     Dates: start: 20100524, end: 20120521
  7. INC424 [Suspect]
     Dosage: UNK
     Route: 048
     Dates: start: 20120402, end: 20120409
  8. MAGNESIUM OXIDE [Concomitant]
     Indication: CONSTIPATION
     Dosage: 2000 MG, UNK
     Route: 048
     Dates: start: 20080715
  9. VITAMIN B12 [Concomitant]
     Indication: NEUROPATHY PERIPHERAL
     Dosage: 1500 MG, UNK
     Route: 048
  10. CELECOXIB [Concomitant]
     Indication: ARTHRALGIA
     Dosage: 200 MG, UNK
     Route: 048
     Dates: start: 20120402
  11. LASIX [Concomitant]
     Indication: OEDEMA PERIPHERAL
     Dosage: 20 MG, UNK
     Route: 048
     Dates: start: 20030811
  12. MORPHINE [Concomitant]
     Indication: CANCER PAIN
     Dosage: UNK
     Route: 048
     Dates: start: 20091214
  13. HALCION [Concomitant]
     Indication: INSOMNIA
     Dosage: 0.25 MG, UNK
     Route: 048
     Dates: start: 20041207

REACTIONS (3)
  - CHOLECYSTITIS ACUTE [None]
  - PYREXIA [None]
  - HERPES ZOSTER [None]
